FAERS Safety Report 5372074-5 (Version None)
Quarter: 2007Q2

REPORT INFORMATION
  Report Type: 
  Country: None (occurrence: None)
  Receive Date: 20070627
  Receipt Date: 20070615
  Transmission Date: 20071010
  Serious: Yes (Hospitalization)
  Sender: FDA-Public Use
  Company Number: GB-ROCHE-502892

PATIENT
  Age: 46 Year
  Sex: Male
  Weight: 95.3 kg

DRUGS (17)
  1. XENICAL [Suspect]
     Indication: OBESITY
     Route: 048
     Dates: start: 20070315
  2. DOXAZOSIN MESYLATE [Concomitant]
  3. AMLODIPINE [Concomitant]
  4. SALBUTAMOL [Concomitant]
  5. OMEPRAZOLE [Concomitant]
  6. LOSARTAN POTASSIUM [Concomitant]
  7. METFORMIN HCL [Concomitant]
  8. GLIMEPIRIDE [Concomitant]
  9. ASPIRIN [Concomitant]
  10. CETRIZINE [Concomitant]
  11. ACARBOSE [Concomitant]
  12. BECLOMETHASONE DIPROPIONATE [Concomitant]
  13. ISOSORBIDE MONONITRATE [Concomitant]
  14. MULTIVITAMIN NOS [Concomitant]
  15. OMEGA [Concomitant]
  16. UNSPECIFIED DRUG [Concomitant]
     Route: 047
  17. ATORVASTATIN [Concomitant]

REACTIONS (2)
  - GASTROINTESTINAL INFLAMMATION [None]
  - NEPHROLITHIASIS [None]
